FAERS Safety Report 5500553-6 (Version None)
Quarter: 2007Q4

REPORT INFORMATION
  Report Type: 
  Country: None (occurrence: None)
  Receive Date: 20071029
  Receipt Date: 20071024
  Transmission Date: 20080405
  Serious: Yes (Hospitalization, Other)
  Sender: FDA-Public Use
  Company Number: TR-BRISTOL-MYERS SQUIBB COMPANY-13943337

PATIENT
  Age: 50 Year
  Sex: Male

DRUGS (3)
  1. ENTECAVIR [Suspect]
     Indication: HEPATITIS B
     Route: 048
     Dates: start: 20070926, end: 20071015
  2. ENTECAVIR [Suspect]
     Indication: HEPATIC FAILURE
     Route: 048
     Dates: start: 20070926, end: 20071015
  3. INSULIN [Concomitant]
     Dates: start: 20030610

REACTIONS (2)
  - ACTIVATED PARTIAL THROMBOPLASTIN TIME PROLONGED [None]
  - HEPATIC ENCEPHALOPATHY [None]
